FAERS Safety Report 4363350-3 (Version None)
Quarter: 2004Q2

REPORT INFORMATION
  Report Type: 
  Country: None (occurrence: None)
  Receive Date: 20040524
  Receipt Date: 20040512
  Transmission Date: 20050107
  Serious: Yes (Life-Threatening, Hospitalization, Congenital Anomaly, Other)
  Sender: FDA-Public Use
  Company Number: TR-MERCK-0405TUR00003

PATIENT
  Age: 27 Year
  Sex: Female

DRUGS (2)
  1. BETAMETHASONE [Concomitant]
     Route: 042
  2. INDOCIN [Suspect]
     Route: 054

REACTIONS (9)
  - CAESAREAN SECTION [None]
  - CONGENITAL ATRIAL SEPTAL DEFECT [None]
  - HYPOXIA [None]
  - MATERNAL DRUGS AFFECTING FOETUS [None]
  - MITRAL VALVE DISEASE [None]
  - NEONATAL RESPIRATORY DISTRESS SYNDROME [None]
  - PERSISTENT FOETAL CIRCULATION [None]
  - PREMATURE BABY [None]
  - TWIN PREGNANCY [None]
